FAERS Safety Report 17388942 (Version 3)
Quarter: 2020Q1

REPORT INFORMATION
  Report Type: Report from Study
  Country: US (occurrence: US)
  Receive Date: 20200206
  Receipt Date: 20200228
  Transmission Date: 20200409
  Serious: Yes (Hospitalization, Other)
  Sender: FDA-Public Use
  Company Number: US-ROCHE-1850778

PATIENT
  Age: 70 Year
  Sex: Female
  Weight: 55.7 kg

DRUGS (19)
  1. HYDROCORTISONE. [Concomitant]
     Active Substance: HYDROCORTISONE
     Indication: DERMATITIS ACNEIFORM
     Route: 065
     Dates: start: 20160516
  2. AMLODIPINE [Concomitant]
     Active Substance: AMLODIPINE BESYLATE
     Indication: HYPERTENSION
     Route: 065
     Dates: start: 20160109
  3. ERLOTINIB [Suspect]
     Active Substance: ERLOTINIB
     Indication: NON-SMALL CELL LUNG CANCER
     Route: 048
  4. MINOCYCLINE [Concomitant]
     Active Substance: MINOCYCLINE HYDROCHLORIDE
     Indication: DERMATITIS ACNEIFORM
     Route: 048
     Dates: start: 20160516, end: 20160519
  5. MORPHINE [Concomitant]
     Active Substance: MORPHINE
     Indication: PAIN IN EXTREMITY
     Route: 048
     Dates: start: 20160428
  6. NAPROXEN SODIUM. [Concomitant]
     Active Substance: NAPROXEN SODIUM
     Indication: PAIN IN EXTREMITY
     Route: 048
     Dates: start: 20160223
  7. DULOXETINE. [Concomitant]
     Active Substance: DULOXETINE
     Indication: DEPRESSION
     Route: 048
     Dates: start: 20160204
  8. GABAPENTIN. [Concomitant]
     Active Substance: GABAPENTIN
     Indication: ORAL PAIN
     Route: 048
     Dates: start: 20160128
  9. ZOLPIDEM [Concomitant]
     Active Substance: ZOLPIDEM TARTRATE
     Indication: INSOMNIA
     Route: 048
     Dates: start: 20160301
  10. ZITHROMAX [Concomitant]
     Active Substance: AZITHROMYCIN DIHYDRATE
     Indication: COUGH
     Route: 065
     Dates: start: 20161013, end: 20161014
  11. CALCIUM CARBONATE. [Concomitant]
     Active Substance: CALCIUM CARBONATE
     Dosage: HEALTH MAINTENANCE
     Route: 048
     Dates: start: 20160223
  12. MELOXICAM. [Concomitant]
     Active Substance: MELOXICAM
     Indication: PAIN IN EXTREMITY
     Route: 048
     Dates: start: 20160126
  13. MINOCYCLINE [Concomitant]
     Active Substance: MINOCYCLINE HYDROCHLORIDE
     Route: 048
     Dates: start: 20160519, end: 20160609
  14. ZITHROMAX [Concomitant]
     Active Substance: AZITHROMYCIN DIHYDRATE
     Route: 065
     Dates: start: 20161014, end: 20161017
  15. BEVACIZUMAB. [Suspect]
     Active Substance: BEVACIZUMAB
     Indication: NON-SMALL CELL LUNG CANCER
     Route: 065
  16. AMLODIPINE [Concomitant]
     Active Substance: AMLODIPINE BESYLATE
     Indication: HYPERTENSION
     Dosage: DOSE: 5-160 MG
     Route: 048
     Dates: start: 20160209, end: 20160901
  17. ATORVASTATIN [Concomitant]
     Active Substance: ATORVASTATIN
     Indication: DYSLIPIDAEMIA
     Route: 048
     Dates: start: 20160209
  18. ACETAMINOPHEN. [Concomitant]
     Active Substance: ACETAMINOPHEN
     Indication: PAIN IN EXTREMITY
     Dosage: DOSE: 325-5 MG
     Route: 048
     Dates: start: 20160414
  19. VITAMIN D3 [Concomitant]
     Active Substance: CHOLECALCIFEROL
     Dosage: HEALTH MAINTENANCE
     Route: 048
     Dates: start: 20160223

REACTIONS (4)
  - Pneumonia [Unknown]
  - Pulmonary haemorrhage [Unknown]
  - Haemoptysis [Unknown]
  - Pulmonary haemorrhage [Unknown]

NARRATIVE: CASE EVENT DATE: 20161029
